FAERS Safety Report 6389354-7 (Version None)
Quarter: 2009Q4

REPORT INFORMATION
  Report Type: 
  Country: None (occurrence: None)
  Receive Date: 20091006
  Receipt Date: 20070821
  Transmission Date: 20100525
  Serious: Yes (Other)
  Sender: FDA-Public Use
  Company Number: US-ASTRAZENECA-2006UW22421

PATIENT
  Age: 44 Year
  Sex: Female
  Weight: 81.6 kg

DRUGS (22)
  1. SEROQUEL [Suspect]
     Indication: ANXIETY
     Route: 048
     Dates: start: 20030101, end: 20050501
  2. SEROQUEL [Suspect]
     Indication: DEPRESSION
     Route: 048
     Dates: start: 20030101, end: 20050501
  3. SEROQUEL [Suspect]
     Indication: INSOMNIA
     Route: 048
     Dates: start: 20030101, end: 20050501
  4. SEROQUEL [Suspect]
     Route: 048
     Dates: start: 20040901, end: 20050823
  5. SEROQUEL [Suspect]
     Route: 048
     Dates: start: 20040901, end: 20050823
  6. SEROQUEL [Suspect]
     Route: 048
     Dates: start: 20040901, end: 20050823
  7. TOPAMAX [Concomitant]
     Indication: DEPRESSION
     Dosage: 100MG TWICE DAILY,50MG 3 AT MORNIING AND 3 AT EVENING, 50MG 3 TABLETS 3 TIMES A DAY
     Route: 048
     Dates: start: 20040602
  8. METFORMIN HYDROCHLORIDE [Concomitant]
     Dosage: 500MG 1 TABLET DAILY AND HALF TABLET TWICE A DAILY
     Route: 048
     Dates: start: 20050414
  9. ZANTAC [Concomitant]
     Dosage: 150MG TWICE DAILY AND 300 MG AT NIGHT
     Route: 048
     Dates: start: 19951027
  10. ZOLOFT [Concomitant]
     Dosage: 100-200 MG
     Route: 048
     Dates: start: 20040901
  11. LIPITOR [Concomitant]
     Dosage: 40 MG DISPENSED, 80MG AT NIGHT
     Route: 048
     Dates: start: 20040908
  12. PLAVIX [Concomitant]
     Route: 048
     Dates: start: 20040921
  13. CYMBALTA [Concomitant]
     Dosage: 20-60 MG
     Route: 048
     Dates: start: 20060905
  14. ASPIRIN [Concomitant]
     Route: 048
     Dates: start: 20060905
  15. LORAZEPAM [Concomitant]
     Route: 048
     Dates: start: 20060905
  16. METHADONE HYDROCHLORIDE [Concomitant]
     Route: 048
     Dates: start: 20060905
  17. TRAZODONE [Concomitant]
     Dosage: 100-200 MG
     Route: 048
     Dates: start: 20060905
  18. PREDNISONE/ STEROID [Concomitant]
     Dosage: 10 MG 4 DAILY FOR 2 DAYS,3 DAILY FOR 2 DAYS,2 DAILY FOR 2 DAYS,1 DAILY FOR 2 DAYS
     Route: 048
     Dates: start: 19940322
  19. NEXIUM [Concomitant]
     Route: 048
     Dates: start: 20040910
  20. BUSPIRONE HCL [Concomitant]
     Dosage: 10MG 2 TABLETS THREE TIMES A DAY
     Route: 048
     Dates: start: 20040908
  21. CLONAZEPAM [Concomitant]
     Dosage: 1MG HALF TABLET TWICE DAILY AND ONE TABLET AT NIGHT, ONE TABLET THREE TIMES A DAY
     Route: 048
     Dates: start: 20040908
  22. ATENOLOL [Concomitant]
     Dosage: 25-50 MG
     Route: 048
     Dates: start: 20040908

REACTIONS (5)
  - DIABETES MELLITUS [None]
  - DIABETIC FOOT [None]
  - DIABETIC NEUROPATHY [None]
  - HYPERGLYCAEMIA [None]
  - TYPE 2 DIABETES MELLITUS [None]
